FAERS Safety Report 10134041 (Version 1)
Quarter: 2014Q2

REPORT INFORMATION
  Report Type: Spontaneous
  Country: US (occurrence: US)
  Receive Date: 20140428
  Receipt Date: 20140428
  Transmission Date: 20141212
  Serious: No
  Sender: FDA-Public Use
  Company Number: US-SANOFI-AVENTIS-2013SA066537

PATIENT
  Age: 73 Year
  Sex: Female

DRUGS (2)
  1. ALLEGRA 24 HOUR [Suspect]
     Indication: HYPERSENSITIVITY
     Route: 048
     Dates: start: 20130625
  2. ANTIBIOTICS [Concomitant]

REACTIONS (2)
  - Erythema [Unknown]
  - Extra dose administered [Unknown]
